FAERS Safety Report 15448670 (Version 2)
Quarter: 2018Q4

REPORT INFORMATION
  Report Type: Spontaneous
  Country: US (occurrence: US)
  Receive Date: 20180929
  Receipt Date: 20181017
  Transmission Date: 20190204
  Serious: Yes (Other)
  Sender: FDA-Public Use
  Company Number: US-SA-2018SA269726

PATIENT
  Age: 57 Year
  Sex: Female
  Weight: 77.27 kg

DRUGS (12)
  1. BACLOFEN. [Concomitant]
     Active Substance: BACLOFEN
     Dosage: 1 DF, QID; MORNING, NOON, EVENING AND BEDTIME
     Route: 048
  2. RITALIN [Concomitant]
     Active Substance: METHYLPHENIDATE HYDROCHLORIDE
     Dosage: 10 MG, TID
     Route: 048
  3. SUMAVEL DOSEPRO [Concomitant]
     Active Substance: SUMATRIPTAN SUCCINATE
     Indication: HEADACHE
     Dosage: 1 DF, INJECTION
  4. ALAVERT ALLERGY [Concomitant]
     Active Substance: LORATADINE
     Dosage: UNK UNK, BID
     Route: 048
  5. METHOCARBAMOL. [Concomitant]
     Active Substance: METHOCARBAMOL
     Dosage: 1 DF, BID
     Route: 048
  6. IBUPROFEN. [Concomitant]
     Active Substance: IBUPROFEN
     Dosage: 1-2 TAB
     Route: 048
  7. NEURONTIN [Concomitant]
     Active Substance: GABAPENTIN
     Dosage: 1-1.5 TAB AS DIRECTED
     Route: 048
  8. AUBAGIO [Suspect]
     Active Substance: TERIFLUNOMIDE
  9. SEROQUEL [Concomitant]
     Active Substance: QUETIAPINE FUMARATE
     Dosage: 1 TAB QHS
  10. TRAMADOL HCL [Concomitant]
     Active Substance: TRAMADOL HYDROCHLORIDE
     Dosage: 50 MG, Q6H
     Route: 048
  11. ATIVAN [Concomitant]
     Active Substance: LORAZEPAM
     Dosage: 1 DF, HS
     Route: 048
  12. NARATRIPTAN HCL [Concomitant]
     Active Substance: NARATRIPTAN HYDROCHLORIDE
     Indication: HEADACHE
     Dosage: 2.5 MG

REACTIONS (4)
  - Interstitial lung disease [Unknown]
  - Memory impairment [Unknown]
  - Migraine [Unknown]
  - Fatigue [Unknown]
